FAERS Safety Report 10399130 (Version 1)
Quarter: 2014Q3

REPORT INFORMATION
  Report Type: Spontaneous
  Country: US (occurrence: US)
  Receive Date: 20140821
  Receipt Date: 20140821
  Transmission Date: 20150326
  Serious: Yes (Other)
  Sender: FDA-Public Use
  Company Number: US-SA-2014SA109382

PATIENT
  Sex: Female

DRUGS (1)
  1. CLOLAR [Suspect]
     Active Substance: CLOFARABINE
     Indication: LEUKAEMIA RECURRENT
     Route: 065

REACTIONS (3)
  - Platelet count decreased [Unknown]
  - Leukaemia recurrent [Unknown]
  - Subarachnoid haemorrhage [Unknown]
